FAERS Safety Report 10949667 (Version 1)
Quarter: 2015Q1

REPORT INFORMATION
  Report Type: Spontaneous
  Country: US (occurrence: None)
  Receive Date: 20150226
  Receipt Date: 20150226
  Transmission Date: 20150721
  Serious: Yes (Hospitalization, Other)
  Sender: FDA-Public Use
  Company Number: TAP2006Q01831

PATIENT
  Age: 78 Year
  Sex: Male
  Weight: 90.9 kg

DRUGS (1)
  1. PREVACID [Suspect]
     Active Substance: LANSOPRAZOLE
     Indication: GASTROOESOPHAGEAL REFLUX DISEASE
     Dosage: 2 IN 1 D
     Route: 048
     Dates: start: 200605

REACTIONS (2)
  - Arrhythmia [None]
  - Myocardial infarction [None]

NARRATIVE: CASE EVENT DATE: 20060805
